FAERS Safety Report 8549910-4 (Version None)
Quarter: 2012Q3

REPORT INFORMATION
  Report Type: 
  Country: None (occurrence: None)
  Receive Date: 20120730
  Receipt Date: 20120509
  Transmission Date: 20120928
  Serious: No
  Sender: FDA-Public Use
  Company Number: US-GLAXOSMITHKLINE-A0976971A

PATIENT
  Age: 64 Year
  Sex: Female

DRUGS (8)
  1. PREDNISONE [Concomitant]
  2. ALLERGY MEDICINE [Concomitant]
  3. LEVOXYL [Concomitant]
  4. AVAPRO [Concomitant]
  5. SUMATRIPTAN SUCCINATE [Suspect]
     Indication: MIGRAINE
     Dosage: 1TAB VARIABLE DOSE
     Route: 048
     Dates: start: 20090801
  6. NAPROXEN [Concomitant]
  7. HORMONES [Concomitant]
  8. OXYCONTIN [Concomitant]

REACTIONS (1)
  - THERAPEUTIC RESPONSE UNEXPECTED [None]
